FAERS Safety Report 12239500 (Version 1)
Quarter: 2016Q2

REPORT INFORMATION
  Report Type: Report from Study
  Country: US (occurrence: US)
  Receive Date: 20160405
  Receipt Date: 20160405
  Transmission Date: 20160815
  Serious: Yes (Hospitalization)
  Sender: FDA-Public Use
  Company Number: US-BIOMARINAP-US-2016-109401

PATIENT
  Sex: Male

DRUGS (1)
  1. ALDURAZYME [Suspect]
     Active Substance: LARONIDASE
     Indication: MUCOPOLYSACCHARIDOSIS I
     Dosage: 8.7 MG, QW
     Route: 041
     Dates: start: 20160120

REACTIONS (2)
  - Pyrexia [Recovering/Resolving]
  - Vomiting [Recovering/Resolving]
